FAERS Safety Report 19042383 (Version 1)
Quarter: 2021Q1

REPORT INFORMATION
  Report Type: Spontaneous
  Country: US (occurrence: US)
  Receive Date: 20210322
  Receipt Date: 20210322
  Transmission Date: 20210420
  Serious: Yes (Other)
  Sender: FDA-Public Use
  Company Number: NVSC2021US061030

PATIENT
  Weight: 24 kg

DRUGS (1)
  1. KYMRIAH [Suspect]
     Active Substance: TISAGENLECLEUCEL
     Indication: ACUTE LYMPHOCYTIC LEUKAEMIA
     Dosage: 10 ML, ONCE/SINGLE
     Route: 042
     Dates: start: 20200928, end: 20200928

REACTIONS (1)
  - B-lymphocyte count abnormal [Unknown]
